FAERS Safety Report 15644043 (Version 2)
Quarter: 2018Q4

REPORT INFORMATION
  Report Type: Spontaneous
  Country: TR (occurrence: TR)
  Receive Date: 20181121
  Receipt Date: 20181221
  Transmission Date: 20190205
  Serious: Yes (Hospitalization)
  Sender: FDA-Public Use
  Company Number: TR-PFIZER INC-2018475324

PATIENT
  Age: 69 Year
  Sex: Female
  Weight: 86 kg

DRUGS (8)
  1. AKINETON [BIPERIDEN] [Concomitant]
     Dosage: 2 MG, UNK
     Dates: start: 20180910, end: 20181003
  2. DESAL [FUROSEMIDE] [Concomitant]
     Dosage: 40 MG, UNK
     Dates: start: 20180910, end: 20181003
  3. REXAPIN [Suspect]
     Active Substance: OLANZAPINE
     Indication: NEUROSIS
     Dosage: 5 MG, 1X/DAY
     Dates: start: 20150101, end: 20181003
  4. NEURONTIN [Suspect]
     Active Substance: GABAPENTIN
     Indication: POSTOPERATIVE ANALGESIA
     Dosage: 400 MG, 3X/DAY
     Route: 048
     Dates: start: 20180910, end: 20181003
  5. DIDERAL [Concomitant]
     Active Substance: PROPRANOLOL HYDROCHLORIDE
     Dosage: 40 MG, UNK
     Dates: start: 20180910, end: 20181003
  6. NORODOL [Suspect]
     Active Substance: HALOPERIDOL
     Dosage: UNK
     Dates: end: 20181003
  7. GYREX [QUETIAPINE FUMARATE] [Suspect]
     Active Substance: QUETIAPINE FUMARATE
     Indication: NEUROSIS
     Dosage: 50 MG, 1X/DAY
     Dates: start: 20170712, end: 20181003
  8. ZESPIRA [Concomitant]
     Indication: ASTHMA
     Dosage: 10 MG, UNK
     Dates: start: 20140211

REACTIONS (12)
  - Tremor [Recovered/Resolved]
  - Impaired self-care [Recovered/Resolved]
  - Staring [Recovered/Resolved]
  - Defiant behaviour [Recovered/Resolved]
  - Constipation [Recovered/Resolved]
  - Muscle contractions involuntary [Recovered/Resolved]
  - Hallucinations, mixed [Recovered/Resolved]
  - Disturbance in attention [Recovered/Resolved]
  - Dyskinesia [Recovered/Resolved]
  - Depressed level of consciousness [Recovered/Resolved]
  - Speech disorder [Recovered/Resolved]
  - Repetitive speech [Recovered/Resolved]

NARRATIVE: CASE EVENT DATE: 20180910
